FAERS Safety Report 4557143-1 (Version None)
Quarter: 2005Q1

REPORT INFORMATION
  Report Type: 
  Country: None (occurrence: None)
  Receive Date: 20050119
  Receipt Date: 20050119
  Transmission Date: 20050727
  Serious: Yes (Hospitalization)
  Sender: FDA-Public Use
  Company Number: None

PATIENT
  Age: 86 Year
  Sex: Male
  Weight: 88.905 kg

DRUGS (7)
  1. SALSALATE   750MG [Suspect]
     Indication: OSTEOARTHRITIS
     Dosage: 750MG   QID PRN   ORAL
     Route: 048
     Dates: start: 20030728, end: 20041031
  2. HYDROCHLOROTHIAZIDE [Concomitant]
  3. APAP TAB [Concomitant]
  4. OMEPRAZOLE [Concomitant]
  5. RANITIDINE [Concomitant]
  6. FINASTERIDE [Concomitant]
  7. GABAPENTIN [Concomitant]

REACTIONS (5)
  - GASTRIC ULCER [None]
  - HAEMATEMESIS [None]
  - REFLUX OESOPHAGITIS [None]
  - TREATMENT NONCOMPLIANCE [None]
  - ULCER [None]
